FAERS Safety Report 10429534 (Version 1)
Quarter: 2014Q3

REPORT INFORMATION
  Report Type: Spontaneous
  Country: GB (occurrence: GB)
  Receive Date: 20140904
  Receipt Date: 20140904
  Transmission Date: 20150326
  Serious: Yes (Other)
  Sender: FDA-Public Use
  Company Number: GB-ASTRAZENECA-2014SE64213

PATIENT

DRUGS (2)
  1. SYMBICORT [Suspect]
     Active Substance: BUDESONIDE\FORMOTEROL FUMARATE DIHYDRATE
     Dosage: TWO INHALATIONS OF THIS PRODUCT (DIN 02245386) ONCE NIGHTLY
     Route: 055
  2. MOMETSONE (APO) [Concomitant]

REACTIONS (6)
  - Wheezing [Unknown]
  - Cough [Unknown]
  - Dyspnoea [Unknown]
  - Intentional product misuse [Unknown]
  - Chest pain [Unknown]
  - Productive cough [Unknown]
